FAERS Safety Report 24466117 (Version 1)
Quarter: 2024Q4

REPORT INFORMATION
  Report Type: Spontaneous
  Country: US (occurrence: US)
  Receive Date: 20241018
  Receipt Date: 20241018
  Transmission Date: 20250114
  Serious: No
  Sender: ROCHE
  Company Number: US-ROCHE-3538371

PATIENT
  Age: 19 Year
  Sex: Female
  Weight: 53.52 kg

DRUGS (7)
  1. XOLAIR [Suspect]
     Active Substance: OMALIZUMAB
     Indication: Idiopathic urticaria
     Route: 058
     Dates: start: 202204
  2. XOLAIR [Suspect]
     Active Substance: OMALIZUMAB
  3. ZYRTEC [Concomitant]
     Active Substance: CETIRIZINE HYDROCHLORIDE
     Indication: Idiopathic urticaria
     Dosage: (2) 10 MG TABLETS TWICE DAILY; STARTED BEFORE XOLAIR
     Route: 048
  4. MIDODRINE [Concomitant]
     Active Substance: MIDODRINE
     Indication: Postural orthostatic tachycardia syndrome
     Route: 048
  5. VITAMIN C [Concomitant]
     Active Substance: ASCORBIC ACID
     Route: 048
  6. VITAMIN D3 [Concomitant]
     Active Substance: CHOLECALCIFEROL
     Dosage: TAKES EITHER 3000 MG OR 5000 MG; STARTED BEFORE XOLAIR
     Route: 048
  7. BIOTIN [Concomitant]
     Active Substance: BIOTIN
     Route: 048

REACTIONS (7)
  - Product dose omission issue [Unknown]
  - Product storage error [Unknown]
  - Product packaging quantity issue [Unknown]
  - Syringe issue [Unknown]
  - Device breakage [Unknown]
  - Product complaint [Unknown]
  - Nausea [Unknown]

NARRATIVE: CASE EVENT DATE: 20240329
